FAERS Safety Report 15744776 (Version 1)
Quarter: 2018Q4

REPORT INFORMATION
  Report Type: Spontaneous
  Country: US (occurrence: US)
  Receive Date: 20181205
  Receipt Date: 20181205
  Transmission Date: 20190205
  Serious: No
  Sender: FDA-Public Use
  Company Number: None

PATIENT
  Age: 32 Year
  Sex: Male
  Weight: 70.4 kg

DRUGS (2)
  1. 5-FLUOROURACIL (5-FU) [Suspect]
     Active Substance: FLUOROURACIL
     Dates: end: 20181112
  2. CISPLATIN. [Suspect]
     Active Substance: CISPLATIN
     Dates: end: 20181112

REACTIONS (6)
  - Pain [None]
  - Skin warm [None]
  - Parotid gland enlargement [None]
  - Swelling [None]
  - Body temperature increased [None]
  - Erythema [None]

NARRATIVE: CASE EVENT DATE: 20181126
